FAERS Safety Report 9127785 (Version 1)
Quarter: 2013Q1

REPORT INFORMATION
  Report Type: Spontaneous
  Country: US (occurrence: US)
  Receive Date: 20130228
  Receipt Date: 20130228
  Transmission Date: 20140127
  Serious: No
  Sender: FDA-Public Use
  Company Number: US-PFIZER INC-2013070810

PATIENT
  Sex: Female

DRUGS (1)
  1. GEMFIBROZIL [Suspect]
     Dosage: 600 MG, UNK

REACTIONS (6)
  - Eye pruritus [Unknown]
  - Stomatitis [Unknown]
  - Cheilitis [Unknown]
  - Eating disorder [Unknown]
  - Dysphagia [Unknown]
  - Weight decreased [Unknown]
